FAERS Safety Report 5433625-5 (Version None)
Quarter: 2007Q3

REPORT INFORMATION
  Report Type: 
  Country: None (occurrence: None)
  Receive Date: 20070831
  Receipt Date: 20070820
  Transmission Date: 20080115
  Serious: Yes (Other)
  Sender: FDA-Public Use
  Company Number: JP-NOVOPROD-266782

PATIENT
  Age: 5 Year
  Sex: Male
  Weight: 19 kg

DRUGS (6)
  1. NORDITROPIN [Suspect]
     Indication: GROWTH HORMONE DEFICIENCY
     Dosage: .6 MG, QD
     Route: 058
     Dates: start: 20070307, end: 20070412
  2. NORDITROPIN [Suspect]
     Dosage: .3 MG, QD
     Route: 058
     Dates: start: 20070604, end: 20070601
  3. THYRADIN [Concomitant]
     Indication: HYPOPITUITARISM
     Dosage: 40 MG, QD
     Route: 048
     Dates: start: 20050101
  4. CORTRIL                            /00028601/ [Concomitant]
     Indication: GROWTH HORMONE DEFICIENCY
     Dosage: 8-20
     Route: 048
     Dates: start: 20050101
  5. DESMOPRESSIN ACETATE [Concomitant]
     Indication: HYPOPITUITARISM
     Dosage: 5 MG, QD
     Route: 048
     Dates: start: 20050101
  6. TAMIFLU                            /01400102/ [Concomitant]
     Indication: INFLUENZA
     Dosage: UNK, UNK
     Route: 048
     Dates: start: 20070317

REACTIONS (9)
  - ASTHENIA [None]
  - DECREASED APPETITE [None]
  - FATIGUE [None]
  - FEBRILE CONVULSION [None]
  - INFLUENZA [None]
  - NEOPLASM PROGRESSION [None]
  - OTITIS MEDIA [None]
  - SOMNOLENCE [None]
  - VOMITING [None]
